FAERS Safety Report 9104171 (Version 3)
Quarter: 2013Q2

REPORT INFORMATION
  Report Type: Spontaneous
  Country: BR (occurrence: BR)
  Receive Date: 20130219
  Receipt Date: 20130402
  Transmission Date: 20140414
  Serious: Yes (Other)
  Sender: FDA-Public Use
  Company Number: BR-RANBAXY-2013R5-65209

PATIENT
  Age: 30 Year
  Sex: Female
  Weight: 48 kg

DRUGS (6)
  1. NORTRIPTYLINE [Suspect]
     Indication: ANXIETY
     Dosage: 25 MG, TID
     Route: 048
     Dates: start: 20130130, end: 20130219
  2. NORTRIPTYLINE [Suspect]
     Indication: ANXIETY
     Dosage: 25 MG, QD
     Route: 048
     Dates: start: 20130220, end: 20130313
  3. RIVOTRIL [Concomitant]
     Indication: SLEEP DISORDER
     Dosage: HALF TABLET AT NIGHT
     Route: 065
     Dates: start: 2008
  4. FLUOXETINE HYDROCHLORIDE [Concomitant]
     Indication: PRODUCT USED FOR UNKNOWN INDICATION
     Dosage: UNK
     Route: 065
     Dates: start: 2008, end: 20130313
  5. SERTRALINE [Concomitant]
     Indication: PRODUCT USED FOR UNKNOWN INDICATION
     Dosage: 100 MG, QD
     Route: 065
     Dates: start: 20130313
  6. LORAZEPAM [Concomitant]
     Indication: PRODUCT USED FOR UNKNOWN INDICATION
     Dosage: 4 MG, QD
     Route: 065
     Dates: start: 20130313

REACTIONS (12)
  - Hypoaesthesia [Recovered/Resolved]
  - Delusion [Recovered/Resolved]
  - Ageusia [Recovered/Resolved]
  - Fluid retention [Recovered/Resolved]
  - Hyperhidrosis [Recovered/Resolved]
  - Seborrhoea [Recovered/Resolved]
  - Blister [Recovered/Resolved]
  - Migraine [Recovered/Resolved]
  - Aggression [Recovered/Resolved]
  - Agitation [Recovered/Resolved]
  - Nightmare [Recovered/Resolved]
  - Somnolence [Recovered/Resolved]
